FAERS Safety Report 6244235-4 (Version None)
Quarter: 2009Q2

REPORT INFORMATION
  Report Type: 
  Country: None (occurrence: None)
  Receive Date: 20090623
  Receipt Date: 20090623
  Transmission Date: 20091009
  Serious: Yes (Hospitalization)
  Sender: FDA-Public Use
  Company Number: None

PATIENT
  Age: 63 Year
  Sex: Female
  Weight: 69.5 kg

DRUGS (1)
  1. LAMOTRIGINE [Suspect]
     Indication: HEADACHE
     Dosage: 250 MG EVERY DAY PO
     Route: 048
     Dates: start: 20090327, end: 20090613

REACTIONS (1)
  - DIZZINESS [None]
